FAERS Safety Report 19686664 (Version 1)
Quarter: 2021Q3

REPORT INFORMATION
  Report Type: Spontaneous
  Country: JP (occurrence: JP)
  Receive Date: 20210811
  Receipt Date: 20210811
  Transmission Date: 20211014
  Serious: Yes (Other)
  Sender: FDA-Public Use
  Company Number: JP-PFIZER INC-202100987345

PATIENT
  Age: 90 Year
  Sex: Male

DRUGS (14)
  1. CELECOXIB. [Suspect]
     Active Substance: CELECOXIB
     Indication: TENSION HEADACHE
     Dosage: UNK
     Route: 048
  2. ETIZOLAM [Suspect]
     Active Substance: ETIZOLAM
     Indication: OCCIPITAL NEURALGIA
  3. LOMERIZINE HCL [Suspect]
     Active Substance: LOMERIZINE HYDROCHLORIDE
     Indication: TENSION HEADACHE
     Dosage: UNK
     Route: 048
  4. LOMERIZINE HCL [Suspect]
     Active Substance: LOMERIZINE HYDROCHLORIDE
     Indication: OCCIPITAL NEURALGIA
  5. PREGABALIN. [Suspect]
     Active Substance: PREGABALIN
     Indication: OCCIPITAL NEURALGIA
  6. TIZANIDINE. [Suspect]
     Active Substance: TIZANIDINE
     Indication: TENSION HEADACHE
     Dosage: UNK
     Route: 048
  7. PREGABALIN. [Suspect]
     Active Substance: PREGABALIN
     Indication: TENSION HEADACHE
     Dosage: UNK
     Route: 048
  8. ACETAMINOPHEN. [Suspect]
     Active Substance: ACETAMINOPHEN
     Indication: TENSION HEADACHE
     Dosage: UNK
     Route: 048
  9. TOFISOPAM [Suspect]
     Active Substance: TOFISOPAM
     Indication: TENSION HEADACHE
     Dosage: UNK
     Route: 048
  10. TOFISOPAM [Suspect]
     Active Substance: TOFISOPAM
     Indication: OCCIPITAL NEURALGIA
  11. CELECOXIB. [Suspect]
     Active Substance: CELECOXIB
     Indication: OCCIPITAL NEURALGIA
  12. ETIZOLAM [Suspect]
     Active Substance: ETIZOLAM
     Indication: TENSION HEADACHE
     Dosage: UNK
     Route: 048
  13. ACETAMINOPHEN. [Suspect]
     Active Substance: ACETAMINOPHEN
     Indication: OCCIPITAL NEURALGIA
  14. TIZANIDINE. [Suspect]
     Active Substance: TIZANIDINE
     Indication: OCCIPITAL NEURALGIA

REACTIONS (6)
  - Headache [Recovering/Resolving]
  - Off label use [Unknown]
  - Condition aggravated [Recovering/Resolving]
  - Hypotension [Unknown]
  - Dizziness [Unknown]
  - Bradycardia [Unknown]
